FAERS Safety Report 7461051-6 (Version None)
Quarter: 2011Q2

REPORT INFORMATION
  Report Type: 
  Country: None (occurrence: None)
  Receive Date: 20110505
  Receipt Date: 20110503
  Transmission Date: 20111010
  Serious: Yes (Hospitalization)
  Sender: FDA-Public Use
  Company Number: US-GILEAD-2011-0039067

PATIENT
  Sex: Male

DRUGS (2)
  1. LETAIRIS [Suspect]
     Indication: PRODUCT USED FOR UNKNOWN INDICATION
     Route: 048
     Dates: start: 20110210, end: 20110309
  2. LETAIRIS [Suspect]
     Route: 048
     Dates: start: 20110310, end: 20110321

REACTIONS (1)
  - LUNG NEOPLASM MALIGNANT [None]
